FAERS Safety Report 20216092 (Version 1)
Quarter: 2021Q4

REPORT INFORMATION
  Report Type: Spontaneous
  Country: CN (occurrence: CN)
  Receive Date: 20211222
  Receipt Date: 20211222
  Transmission Date: 20220303
  Serious: Yes (Hospitalization, Disabling)
  Sender: FDA-Public Use
  Company Number: None

PATIENT
  Age: 68 Year
  Sex: Female
  Weight: 60 kg

DRUGS (5)
  1. CAPECITABINE [Suspect]
     Active Substance: CAPECITABINE
     Indication: Breast cancer
     Dosage: 1 GRAM, BID, 1 MILLIGRAM, ADMINISTRATION FOR 2 WEEKS FOLLOWED BY 1-WEEK BREAK
     Route: 048
     Dates: start: 202108, end: 20211204
  2. TRASTUZUMAB [Suspect]
     Active Substance: TRASTUZUMAB
     Indication: Breast cancer
     Dosage: 360 MILLIGRAM, QD
     Route: 041
     Dates: start: 20211202, end: 20211202
  3. ZOLEDRONIC ACID [Suspect]
     Active Substance: ZOLEDRONIC ACID
     Indication: Metastases to bone
     Route: 065
     Dates: start: 20211202, end: 20211202
  4. PERTUZUMAB [Suspect]
     Active Substance: PERTUZUMAB
     Indication: Breast cancer
     Dosage: 420 MILLIGRAM, QD
     Route: 041
     Dates: start: 20211202, end: 20211202
  5. CAPECITABINE [Suspect]
     Active Substance: CAPECITABINE
     Indication: Breast cancer
     Dosage: 1 GRAM, BID
     Route: 048
     Dates: start: 20211204, end: 20211204

REACTIONS (3)
  - Granulocyte count decreased [Recovering/Resolving]
  - Blood potassium decreased [Recovering/Resolving]
  - White blood cell count decreased [Recovering/Resolving]

NARRATIVE: CASE EVENT DATE: 20211206
